FAERS Safety Report 8933878 (Version 1)
Quarter: 2012Q4

REPORT INFORMATION
  Report Type: Report from Study
  Country: CA (occurrence: CA)
  Receive Date: 20121129
  Receipt Date: 20121129
  Transmission Date: 20130627
  Serious: Yes (Other)
  Sender: FDA-Public Use
  Company Number: CA-ROCHE-1161557

PATIENT
  Sex: Female

DRUGS (9)
  1. RITUXIMAB [Suspect]
     Indication: RHEUMATOID ARTHRITIS
     Dosage: Frequency: day 1 and day 15
     Route: 042
     Dates: start: 20100920, end: 20120229
  2. PLAQUENIL [Concomitant]
  3. DIAMICRON [Concomitant]
  4. DIPHENHYDRAMINE HCL [Concomitant]
     Indication: PREMEDICATION
     Route: 048
     Dates: start: 20100920, end: 20120229
  5. ACETAMINOPHEN [Concomitant]
     Indication: PREMEDICATION
     Route: 048
     Dates: start: 20100920, end: 20120229
  6. METHYLPREDNISOLONE [Concomitant]
     Indication: PREMEDICATION
     Route: 042
     Dates: start: 20100920, end: 20120229
  7. METHYLPREDNISOLONE [Concomitant]
     Route: 042
     Dates: start: 20120229
  8. METHOTREXATE [Concomitant]
  9. ACTEMRA [Concomitant]

REACTIONS (2)
  - Blood creatinine increased [Unknown]
  - Renal disorder [Unknown]
